FAERS Safety Report 22262891 (Version 1)
Quarter: 2023Q2

REPORT INFORMATION
  Report Type: Spontaneous
  Country: CN (occurrence: CN)
  Receive Date: 20230428
  Receipt Date: 20230428
  Transmission Date: 20230721
  Serious: Yes (Other)
  Sender: FDA-Public Use
  Company Number: None

PATIENT
  Age: 60 Year
  Sex: Female

DRUGS (7)
  1. METHYLPREDNISOLONE [Suspect]
     Active Substance: METHYLPREDNISOLONE
     Indication: Cystic lung disease
     Dosage: FOR 5 DAYS
     Route: 042
  2. METHYLPREDNISOLONE [Suspect]
     Active Substance: METHYLPREDNISOLONE
     Indication: Cystic lung disease
  3. PREDNISONE [Suspect]
     Active Substance: PREDNISONE
     Indication: Cystic lung disease
     Dosage: 5 TABLETS
     Route: 048
  4. PREDNISONE [Suspect]
     Active Substance: PREDNISONE
     Indication: Cystic lung disease
  5. AMINOPHYLLINE [Concomitant]
     Active Substance: AMINOPHYLLINE
     Dosage: EVERY 12 HOURS
     Route: 042
  6. ALBUTEROL [Concomitant]
     Active Substance: ALBUTEROL
  7. BUDESONIDE [Concomitant]
     Active Substance: BUDESONIDE
     Route: 065

REACTIONS (2)
  - Pulmonary tuberculosis [Recovered/Resolved]
  - Product use in unapproved indication [Unknown]
